FAERS Safety Report 22343658 (Version 2)
Quarter: 2023Q2

REPORT INFORMATION
  Report Type: Report from Study
  Country: US (occurrence: US)
  Receive Date: 20230519
  Receipt Date: 20230523
  Transmission Date: 20230721
  Serious: Yes (Life-Threatening, Hospitalization, Other)
  Sender: FDA-Public Use
  Company Number: US-SUN PHARMACEUTICAL INDUSTRIES LTD-2023R1-389180

PATIENT
  Age: 6 Year

DRUGS (9)
  1. DEXAMETHASONE [Suspect]
     Active Substance: DEXAMETHASONE
     Indication: Inflammation
     Dosage: 10 MILLIGRAM/SQ. METER, DAILY
     Route: 065
  2. RIFAXIMIN [Suspect]
     Active Substance: RIFAXIMIN
     Indication: Acute hepatic failure
     Dosage: UNK
     Route: 065
  3. ANAKINRA [Suspect]
     Active Substance: ANAKINRA
     Indication: Adenovirus infection
     Dosage: 100 MILLIGRAM, DAILY
     Route: 042
  4. ANAKINRA [Suspect]
     Active Substance: ANAKINRA
     Dosage: 100 MILLIGRAM, BID
     Route: 042
  5. CIDOFOVIR [Suspect]
     Active Substance: CIDOFOVIR
     Indication: Adenovirus infection
     Dosage: 5 MILLIGRAM/KILOGRAM, WEEKLY
     Route: 065
  6. ETOPOSIDE [Suspect]
     Active Substance: ETOPOSIDE
     Indication: Inflammation
     Dosage: UNK
     Route: 065
  7. HUMAN IMMUNOGLOBULIN G [Suspect]
     Active Substance: HUMAN IMMUNOGLOBULIN G
     Indication: Inflammation
     Dosage: 2 G/KG
     Route: 042
  8. LACTULOSE [Suspect]
     Active Substance: LACTULOSE
     Indication: Acute hepatic failure
     Dosage: UNK
     Route: 042
  9. PHYTONADIONE [Suspect]
     Active Substance: PHYTONADIONE
     Indication: Acute hepatic failure
     Dosage: UNK
     Route: 065

REACTIONS (4)
  - Hepatic encephalopathy [Not Recovered/Not Resolved]
  - Pleural effusion [Not Recovered/Not Resolved]
  - Disease progression [Not Recovered/Not Resolved]
  - Haemorrhage [Unknown]
